FAERS Safety Report 4887636-9 (Version None)
Quarter: 2006Q1

REPORT INFORMATION
  Report Type: 
  Country: None (occurrence: None)
  Receive Date: 20060123
  Receipt Date: 20060117
  Transmission Date: 20060701
  Serious: Yes (Other)
  Sender: FDA-Public Use
  Company Number: PHMT2006CA00519

PATIENT
  Age: 40 Year
  Sex: Female

DRUGS (2)
  1. FEMARA [Suspect]
     Indication: OVULATION INDUCTION
     Dosage: 2.5 MG, QD FOR FIVE DAYS
     Route: 048
     Dates: start: 20050101
  2. FEMARA [Suspect]
     Dosage: 2.5 MG, QD FOR FIVE DAYS
     Route: 048
     Dates: start: 20051001

REACTIONS (2)
  - ABORTION SPONTANEOUS [None]
  - DRUG EXPOSURE BEFORE PREGNANCY [None]
